FAERS Safety Report 9906551 (Version 2)
Quarter: 2014Q1

REPORT INFORMATION
  Report Type: Spontaneous
  Country: CZ (occurrence: CZ)
  Receive Date: 20140218
  Receipt Date: 20140227
  Transmission Date: 20141002
  Serious: Yes (Other)
  Sender: FDA-Public Use
  Company Number: CZ-ACTAVIS-2014-02414

PATIENT
  Age: 32 Year
  Sex: Female
  Weight: 119 kg

DRUGS (6)
  1. TRAMADOL (UNKNOWN) [Suspect]
     Indication: BACK PAIN
     Dosage: 150 MG, BID
     Route: 048
     Dates: end: 201112
  2. TRAMADOL (UNKNOWN) [Suspect]
     Indication: INTENTIONAL DRUG MISUSE
  3. EUTHYROX [Concomitant]
     Indication: PRODUCT USED FOR UNKNOWN INDICATION
     Dosage: UNK
     Route: 065
  4. ESCITALOPRAM [Concomitant]
     Indication: PRODUCT USED FOR UNKNOWN INDICATION
     Dosage: 20 MG, DAILY
     Route: 065
  5. TRAZODONE [Concomitant]
     Indication: PRODUCT USED FOR UNKNOWN INDICATION
     Dosage: 150 MG, QPM
     Route: 065
  6. QUETIAPINE [Concomitant]
     Indication: PRODUCT USED FOR UNKNOWN INDICATION
     Dosage: 500 MG, DAILY
     Route: 065

REACTIONS (4)
  - Back pain [Unknown]
  - Withdrawal syndrome [Unknown]
  - Drug dependence [Unknown]
  - Intentional drug misuse [Unknown]
